FAERS Safety Report 17391234 (Version 2)
Quarter: 2020Q1

REPORT INFORMATION
  Report Type: Spontaneous
  Country: HU (occurrence: HU)
  Receive Date: 20200207
  Receipt Date: 20200305
  Transmission Date: 20200409
  Serious: Yes (Other)
  Sender: FDA-Public Use
  Company Number: HU-ALLERGAN-2004532US

PATIENT
  Sex: Female

DRUGS (3)
  1. DOPEGYT [Concomitant]
     Active Substance: METHYLDOPA
  2. LEVONORGESTREL - BP [Suspect]
     Active Substance: LEVONORGESTREL
     Indication: PRODUCT USED FOR UNKNOWN INDICATION
     Dosage: 20 MICROG/24 H
     Route: 015
     Dates: start: 20190712
  3. L-THYROXIN [Concomitant]
     Active Substance: LEVOTHYROXINE SODIUM

REACTIONS (4)
  - Abortion [Recovered/Resolved]
  - Pregnancy [Recovered/Resolved]
  - Drug ineffective [Recovered/Resolved]
  - Device expulsion [Recovered/Resolved]
